FAERS Safety Report 16252737 (Version 1)
Quarter: 2019Q2

REPORT INFORMATION
  Report Type: Spontaneous
  Country: LV (occurrence: LV)
  Receive Date: 20190429
  Receipt Date: 20190429
  Transmission Date: 20190711
  Serious: Yes (Other)
  Sender: FDA-Public Use
  Company Number: LV-BAUSCH-BL-2019-012012

PATIENT
  Sex: Female

DRUGS (22)
  1. ISOSORBIDE DINITRATE. [Suspect]
     Active Substance: ISOSORBIDE DINITRATE
     Indication: PULMONARY EMBOLISM
     Dates: start: 2010
  2. NORADRENALINE [Suspect]
     Active Substance: NOREPINEPHRINE
     Indication: HAEMODYNAMIC INSTABILITY
     Route: 064
     Dates: start: 2010
  3. HEPARIN [Suspect]
     Active Substance: HEPARIN SODIUM
     Indication: PRODUCT USED FOR UNKNOWN INDICATION
     Dosage: SINGLE DOSE 7000 DV
     Route: 065
     Dates: start: 2010
  4. MORPHINE [Suspect]
     Active Substance: MORPHINE
     Indication: PULMONARY EMBOLISM
  5. POTASSIUM CHLORIDE. [Suspect]
     Active Substance: POTASSIUM CHLORIDE
     Indication: PULMONARY EMBOLISM
     Route: 064
     Dates: start: 2010
  6. METOPROLOL. [Suspect]
     Active Substance: METOPROLOL
     Indication: ACUTE MYOCARDIAL INFARCTION
     Route: 064
     Dates: start: 2010
  7. METOPROLOL. [Suspect]
     Active Substance: METOPROLOL
     Indication: PULMONARY EMBOLISM
  8. LOW MOLECULAR WEIGHT HEPARIN [Suspect]
     Active Substance: UNSPECIFIED INGREDIENT
     Indication: ACUTE MYOCARDIAL INFARCTION
  9. LEVOSIMENDAN [Suspect]
     Active Substance: LEVOSIMENDAN
     Indication: HAEMODYNAMIC INSTABILITY
     Route: 064
     Dates: start: 2010
  10. ISOSORBIDE DINITRATE. [Suspect]
     Active Substance: ISOSORBIDE DINITRATE
     Indication: ACUTE MYOCARDIAL INFARCTION
     Route: 064
     Dates: start: 2010
  11. POTASSIUM CHLORIDE. [Suspect]
     Active Substance: POTASSIUM CHLORIDE
     Indication: ACUTE MYOCARDIAL INFARCTION
  12. MAGNESIUM SULFATE. [Suspect]
     Active Substance: MAGNESIUM SULFATE
     Indication: ACUTE MYOCARDIAL INFARCTION
  13. LOW MOLECULAR WEIGHT HEPARIN [Suspect]
     Active Substance: UNSPECIFIED INGREDIENT
     Indication: PULMONARY EMBOLISM
     Route: 064
     Dates: start: 2010
  14. DOBUTAMINE [Suspect]
     Active Substance: DOBUTAMINE\DOBUTAMINE HYDROCHLORIDE
     Indication: HAEMODYNAMIC INSTABILITY
     Route: 064
     Dates: start: 2010
  15. MAGNESIUM SULFATE. [Suspect]
     Active Substance: MAGNESIUM SULFATE
     Indication: PULMONARY EMBOLISM
     Route: 064
     Dates: start: 2010
  16. ASPIRIN. [Suspect]
     Active Substance: ASPIRIN
     Indication: PRODUCT USED FOR UNKNOWN INDICATION
     Dosage: SINGLE DOSE
     Route: 064
     Dates: start: 2010
  17. MORPHINE [Suspect]
     Active Substance: MORPHINE
     Indication: ACUTE MYOCARDIAL INFARCTION
     Route: 064
     Dates: start: 2010
  18. INTEGRILIN [Suspect]
     Active Substance: EPTIFIBATIDE
     Indication: PRODUCT USED FOR UNKNOWN INDICATION
     Dosage: SINGLE DOSE
     Route: 064
     Dates: start: 2010
  19. FONDAPARINUX [Suspect]
     Active Substance: FONDAPARINUX
     Indication: PRODUCT USED FOR UNKNOWN INDICATION
     Route: 064
     Dates: start: 2010
  20. VISIPAQUE [Suspect]
     Active Substance: IODIXANOL
     Indication: PRODUCT USED FOR UNKNOWN INDICATION
     Dosage: 320
     Route: 064
     Dates: start: 2010
  21. DOBUTAMINE [Suspect]
     Active Substance: DOBUTAMINE\DOBUTAMINE HYDROCHLORIDE
     Route: 065
  22. OXYGEN. [Suspect]
     Active Substance: OXYGEN
     Indication: PRODUCT USED FOR UNKNOWN INDICATION
     Dosage: SATURATED
     Route: 064
     Dates: start: 2010

REACTIONS (2)
  - Foetal exposure during pregnancy [Unknown]
  - Apgar score low [Unknown]

NARRATIVE: CASE EVENT DATE: 2010
